FAERS Safety Report 22078116 (Version 1)
Quarter: 2023Q1

REPORT INFORMATION
  Report Type: Spontaneous
  Country: PT (occurrence: PT)
  Receive Date: 20230309
  Receipt Date: 20230309
  Transmission Date: 20230418
  Serious: Yes (Other)
  Sender: FDA-Public Use
  Company Number: PT-CHEPLA-2023002173

PATIENT
  Age: 56 Year
  Sex: Female

DRUGS (3)
  1. OMEPRAZOLE [Suspect]
     Active Substance: OMEPRAZOLE
     Indication: Product used for unknown indication
     Dosage: UNK
     Route: 065
  2. PREDNISOLONE [Concomitant]
     Active Substance: PREDNISOLONE
     Dosage: UNK
     Route: 065
  3. ACECLOFENAC [Concomitant]
     Active Substance: ACECLOFENAC
     Dosage: UNK
     Route: 065

REACTIONS (3)
  - Alkalosis hypochloraemic [Recovering/Resolving]
  - Hypomagnesaemia [Recovering/Resolving]
  - Hypokalaemia [Recovering/Resolving]
